FAERS Safety Report 9508601 (Version 3)
Quarter: 2013Q3

REPORT INFORMATION
  Report Type: Spontaneous
  Country: US (occurrence: US)
  Receive Date: 20130909
  Receipt Date: 20130916
  Transmission Date: 20140515
  Serious: Yes (Hospitalization, Other)
  Sender: FDA-Public Use
  Company Number: US-BAXTER-2013BAX034224

PATIENT
  Sex: Female

DRUGS (2)
  1. DIANEAL LOW CALCIUM [Suspect]
     Indication: PERITONEAL DIALYSIS
     Dosage: 2 BAGS
     Route: 033
  2. EXTRANEAL [Suspect]
     Indication: PERITONEAL DIALYSIS
     Dosage: 1 BAG
     Route: 033

REACTIONS (4)
  - Urinary tract infection [Recovering/Resolving]
  - Pneumoperitoneum [Unknown]
  - Chest pain [Unknown]
  - Feeling abnormal [Unknown]
